FAERS Safety Report 11142043 (Version 1)
Quarter: 2015Q2

REPORT INFORMATION
  Report Type: Spontaneous
  Country: US (occurrence: None)
  Receive Date: 20150526
  Receipt Date: 20150526
  Transmission Date: 20150821
  Serious: Yes (Disabling)
  Sender: FDA-Public Use
  Company Number: None

PATIENT
  Age: 31 Year
  Sex: Male
  Weight: 72.12 kg

DRUGS (2)
  1. ZANTAC [Suspect]
     Active Substance: RANITIDINE HYDROCHLORIDE
     Indication: DYSPEPSIA
     Route: 048
     Dates: start: 20120825, end: 20121025
  2. ZANTAC [Suspect]
     Active Substance: RANITIDINE HYDROCHLORIDE
     Indication: EXPOSURE TO CONTAMINATED WATER
     Route: 048
     Dates: start: 20120825, end: 20121025

REACTIONS (8)
  - Weight decreased [None]
  - Breath odour [None]
  - Abnormal faeces [None]
  - Feeling drunk [None]
  - Starvation [None]
  - Hyperhidrosis [None]
  - Increased upper airway secretion [None]
  - Constipation [None]

NARRATIVE: CASE EVENT DATE: 20120825
